FAERS Safety Report 8617121 (Version 3)
Quarter: 2013Q3

REPORT INFORMATION
  Report Type: Spontaneous
  Country: US (occurrence: US)
  Receive Date: 20120615
  Receipt Date: 20130709
  Transmission Date: 20140515
  Serious: Yes (Other)
  Sender: FDA-Public Use
  Company Number: US-JNJFOC-20120604272

PATIENT
  Age: 48 Year
  Sex: Male
  Weight: 77.1 kg

DRUGS (35)
  1. REMICADE [Suspect]
     Indication: CROHN^S DISEASE
     Route: 042
     Dates: start: 20101119
  2. REMICADE [Suspect]
     Indication: CROHN^S DISEASE
     Route: 042
     Dates: start: 20100915
  3. REMICADE [Suspect]
     Indication: CROHN^S DISEASE
     Route: 042
     Dates: start: 20100721
  4. REMICADE [Suspect]
     Indication: CROHN^S DISEASE
     Route: 042
     Dates: start: 20100623
  5. REMICADE [Suspect]
     Indication: CROHN^S DISEASE
     Route: 042
     Dates: start: 20100609
  6. REMICADE [Suspect]
     Indication: CROHN^S DISEASE
     Dosage: IN 250 ML NORMAL SALINE
     Route: 042
     Dates: start: 20100122
  7. REMICADE [Suspect]
     Indication: CROHN^S DISEASE
     Route: 042
     Dates: start: 20110720
  8. REMICADE [Suspect]
     Indication: CROHN^S DISEASE
     Route: 042
     Dates: start: 20110831
  9. REMICADE [Suspect]
     Indication: CROHN^S DISEASE
     Route: 042
     Dates: start: 20111012
  10. REMICADE [Suspect]
     Indication: CROHN^S DISEASE
     Route: 042
     Dates: start: 20111121
  11. REMICADE [Suspect]
     Indication: CROHN^S DISEASE
     Dosage: IN 250 ML NORMAL SALINE
     Route: 042
     Dates: start: 20120605, end: 20120605
  12. REMICADE [Suspect]
     Indication: CROHN^S DISEASE
     Route: 042
     Dates: start: 20120104
  13. REMICADE [Suspect]
     Indication: CROHN^S DISEASE
     Route: 042
     Dates: start: 20120215
  14. REMICADE [Suspect]
     Indication: CROHN^S DISEASE
     Route: 042
     Dates: start: 20120328
  15. REMICADE [Suspect]
     Indication: CROHN^S DISEASE
     Route: 042
     Dates: start: 20110608
  16. REMICADE [Suspect]
     Indication: CROHN^S DISEASE
     Route: 042
     Dates: start: 20110105
  17. REMICADE [Suspect]
     Indication: CROHN^S DISEASE
     Route: 042
     Dates: start: 20110228
  18. REMICADE [Suspect]
     Indication: CROHN^S DISEASE
     Route: 042
     Dates: start: 20110426
  19. REMICADE [Suspect]
     Indication: CROHN^S DISEASE
     Route: 042
  20. TYLENOL [Concomitant]
     Indication: PREMEDICATION
     Route: 048
  21. LIALDA [Concomitant]
     Route: 065
     Dates: start: 20111212, end: 20120926
  22. CYCLOBENZAPRINE [Concomitant]
     Indication: MUSCLE SPASMS
     Route: 065
     Dates: start: 20100823, end: 20130129
  23. ZOFRAN [Concomitant]
     Indication: NAUSEA
     Dosage: Q 6 PRN
     Route: 065
     Dates: start: 20120611, end: 20120611
  24. BENADRYL [Concomitant]
     Indication: PREMEDICATION
     Route: 042
  25. GLIMEPIRIDE [Concomitant]
     Route: 065
     Dates: end: 20121117
  26. PERCOCET [Concomitant]
     Indication: PAIN
     Route: 065
     Dates: start: 20120508, end: 20120611
  27. VIT B COMPLEX [Concomitant]
     Route: 065
  28. LIDOCAINE GEL [Concomitant]
     Route: 065
     Dates: start: 20120412, end: 20130129
  29. LISINOPRIL [Concomitant]
     Route: 065
     Dates: start: 20111212, end: 20130405
  30. FLUOXETINE [Concomitant]
     Route: 065
     Dates: start: 20111212, end: 20130405
  31. AMARYL [Concomitant]
     Route: 065
     Dates: start: 20111212, end: 20130606
  32. ZOCOR [Concomitant]
     Dosage: EVERYDAY
     Route: 065
     Dates: start: 20111212, end: 20120906
  33. TESTOSTERONE [Concomitant]
     Route: 065
     Dates: start: 20111212, end: 20121118
  34. PREDNISONE [Concomitant]
     Dosage: TAPERING
     Route: 065
     Dates: start: 20120106, end: 20120605
  35. GLUCOPHAGE [Concomitant]
     Route: 065
     Dates: start: 20111213, end: 20130606

REACTIONS (10)
  - Abdominal pain [Recovered/Resolved]
  - Flushing [Recovered/Resolved]
  - Infusion related reaction [Recovered/Resolved]
  - Chest discomfort [Recovered/Resolved]
  - Fistula [Unknown]
  - Abscess [Unknown]
  - Tachypnoea [Recovered/Resolved]
  - Nausea [Recovered/Resolved]
  - Hypertension [Recovered/Resolved]
  - White blood cell count decreased [Unknown]
